FAERS Safety Report 13599357 (Version 1)
Quarter: 2017Q2

REPORT INFORMATION
  Report Type: Report from Study
  Country: DE (occurrence: DE)
  Receive Date: 20170531
  Receipt Date: 20170531
  Transmission Date: 20170830
  Serious: Yes (Death)
  Sender: FDA-Public Use
  Company Number: DE-ARIAD PHARMACEUTICALS, INC-2017DE008297

PATIENT
  Sex: Female

DRUGS (1)
  1. AP26113 [Suspect]
     Active Substance: BRIGATINIB
     Indication: PRODUCT USED FOR UNKNOWN INDICATION
     Dosage: UNK
     Route: 048
     Dates: start: 20160902, end: 20170414

REACTIONS (2)
  - Death [Fatal]
  - Drug ineffective [Unknown]
